FAERS Safety Report 5831538-8 (Version None)
Quarter: 2008Q3

REPORT INFORMATION
  Report Type: 
  Country: None (occurrence: None)
  Receive Date: 20080801
  Receipt Date: 20080721
  Transmission Date: 20090109
  Serious: Yes (Other)
  Sender: FDA-Public Use
  Company Number: US-PFIZER INC-2008061597

PATIENT
  Age: 69 Year
  Sex: Female
  Weight: 68 kg

DRUGS (1)
  1. DETROL LA [Suspect]
     Indication: BLADDER DISORDER
     Dates: start: 20070401, end: 20080101

REACTIONS (5)
  - DRY EYE [None]
  - DRY MOUTH [None]
  - INTRAOCULAR PRESSURE INCREASED [None]
  - TOOTH DISORDER [None]
  - TOOTH EXTRACTION [None]
